FAERS Safety Report 18305559 (Version 1)
Quarter: 2020Q3

REPORT INFORMATION
  Report Type: Spontaneous
  Country: US (occurrence: US)
  Receive Date: 20200923
  Receipt Date: 20200923
  Transmission Date: 20201103
  Serious: Yes (Hospitalization)
  Sender: FDA-Public Use
  Company Number: None

PATIENT
  Age: 34 Year
  Sex: Female
  Weight: 93.5 kg

DRUGS (4)
  1. LISINOPRIL 20 MG DAILY [Concomitant]
  2. METFORMIN 1500 MG BID [Concomitant]
  3. GLIMEPERIDE 4 MG BID [Concomitant]
  4. ERTUGLIFLOZIN [Suspect]
     Active Substance: ERTUGLIFLOZIN
     Indication: TYPE 2 DIABETES MELLITUS
     Route: 048
     Dates: end: 20200923

REACTIONS (2)
  - Anal abscess [None]
  - Fournier^s gangrene [None]

NARRATIVE: CASE EVENT DATE: 20200922
